FAERS Safety Report 9350297 (Version 1)
Quarter: 2013Q2

REPORT INFORMATION
  Report Type: Spontaneous
  Country: FR (occurrence: FR)
  Receive Date: 20130617
  Receipt Date: 20130617
  Transmission Date: 20140414
  Serious: Yes (Hospitalization)
  Sender: FDA-Public Use
  Company Number: FR-ROCHE-1237114

PATIENT
  Age: 66 Year
  Sex: Female

DRUGS (3)
  1. AVASTIN [Suspect]
     Indication: BREAST CANCER
     Route: 042
     Dates: end: 20130131
  2. AVASTIN [Suspect]
     Dosage: LAST COURSE WAS ON 14/FEB/2013
     Route: 042
  3. TAXOL [Suspect]
     Indication: BREAST CANCER
     Dosage: LAST COURSE WAS ON 14/FEB/2013
     Route: 065

REACTIONS (2)
  - Cerebral haemorrhage [Not Recovered/Not Resolved]
  - Confusional state [Not Recovered/Not Resolved]
